FAERS Safety Report 14255051 (Version 1)
Quarter: 2017Q4

REPORT INFORMATION
  Report Type: Report from Study
  Country: US (occurrence: US)
  Receive Date: 20171206
  Receipt Date: 20171206
  Transmission Date: 20180321
  Serious: Yes (Death)
  Sender: FDA-Public Use
  Company Number: US-ROCHE-2035446

PATIENT

DRUGS (1)
  1. ALTEPLASE. [Suspect]
     Active Substance: ALTEPLASE
     Indication: PULMONARY EMBOLISM
     Route: 065

REACTIONS (5)
  - Gastrointestinal haemorrhage [Fatal]
  - Colitis ischaemic [Fatal]
  - Cerebral haemorrhage [Fatal]
  - Vascular access site haemorrhage [Unknown]
  - Haemorrhagic stroke [Fatal]
